FAERS Safety Report 9522496 (Version 1)
Quarter: 2013Q1

REPORT INFORMATION
  Report Type: Spontaneous
  Country: US (occurrence: None)
  Receive Date: 20130305
  Receipt Date: 20130305
  Transmission Date: 20140127
  Serious: Yes (Other)
  Sender: FDA-Public Use
  Company Number: 163-21880-12063804

PATIENT
  Age: 61 Year
  Sex: Male
  Weight: 77.57 kg

DRUGS (6)
  1. REVLIMID (LENALIDOMIDE) (CAPSULES) [Suspect]
     Indication: PLASMA CELL MYELOMA
     Dosage: 25 MG, QD X 21 DAYS OF 28 DAY CYCKE , PO
     Route: 048
     Dates: start: 20120529, end: 20120627
  2. DEXAKETHASONE (DEXAMETHASONE) [Concomitant]
  3. LISINOPRIL (LISINOPRIL) [Concomitant]
  4. ZANTAC (RANITIDINE HYDROCHLORIDE) [Concomitant]
  5. PROPRANOLOL (PROPRANOLOL) [Concomitant]
  6. DALTEPARIN (DALTEPARIN) [Concomitant]

REACTIONS (1)
  - Creatinine renal clearance decreased [None]
